FAERS Safety Report 13492386 (Version 7)
Quarter: 2019Q4

REPORT INFORMATION
  Report Type: Spontaneous
  Country: US (occurrence: US)
  Receive Date: 20170427
  Receipt Date: 20191009
  Transmission Date: 20200122
  Serious: Yes (Other)
  Sender: FDA-Public Use
  Company Number: US-PFIZER INC-2017181609

PATIENT
  Age: 47 Year
  Sex: Female
  Weight: 117.4 kg

DRUGS (14)
  1. ALIVE! WHOLE FOOD ENERGIZER MULTI-VITAMIN [Concomitant]
     Indication: SUPPLEMENTATION THERAPY
     Dosage: 1 DF, DAILY
     Route: 048
     Dates: start: 2015
  2. GARCINIA CAMBOGIA [Concomitant]
     Active Substance: HERBALS\GARCINIA CAMBOGIA FRUIT
     Indication: MENOPAUSAL SYMPTOMS
     Dosage: 2000 MG, 3X/DAY
     Route: 048
  3. GENOTROPIN MQ [Suspect]
     Active Substance: SOMATROPIN
     Indication: GROWTH HORMONE DEFICIENCY
     Dosage: 0.8 MG, DAILY
     Dates: start: 2015, end: 201801
  4. LEVOTHYROXINE. [Concomitant]
     Active Substance: LEVOTHYROXINE
     Indication: HYPOTHYROIDISM
     Dosage: 175 UG, 1X/DAY
     Route: 048
  5. GENOTROPIN MQ [Suspect]
     Active Substance: SOMATROPIN
     Indication: CRANIOCEREBRAL INJURY
     Dosage: 0.8 MG, UNK
  6. AMITRIPTYLINE [Concomitant]
     Active Substance: AMITRIPTYLINE
     Indication: PSYCHOTIC DISORDER
  7. GENOTROPIN MQ [Suspect]
     Active Substance: SOMATROPIN
     Indication: HYPOTHALAMO-PITUITARY DISORDER
     Dosage: 0.8 MG, 1X/DAY
     Route: 058
     Dates: start: 2014, end: 20170423
  8. AMITRIPTYLINE [Concomitant]
     Active Substance: AMITRIPTYLINE
     Indication: SLEEP DISORDER
     Dosage: 50 MG, 1X/DAY
     Route: 048
     Dates: start: 2010
  9. GARCINIA CAMBOGIA [Concomitant]
     Active Substance: HERBALS\GARCINIA CAMBOGIA FRUIT
     Indication: HAEMORRHAGE
  10. GARCINIA CAMBOGIA [Concomitant]
     Active Substance: HERBALS\GARCINIA CAMBOGIA FRUIT
     Indication: MEDICAL DIET
  11. GARCINIA CAMBOGIA [Concomitant]
     Active Substance: HERBALS\GARCINIA CAMBOGIA FRUIT
     Indication: MOOD ALTERED
  12. GENOTROPIN MQ [Suspect]
     Active Substance: SOMATROPIN
     Dosage: UNK ^UPPED TO 1.00^
  13. XANAX [Concomitant]
     Active Substance: ALPRAZOLAM
     Indication: PANIC ATTACK
     Dosage: 1.0 MG, 3X/DAY
     Route: 048
     Dates: start: 2012
  14. GARCINIA CAMBOGIA [Concomitant]
     Active Substance: HERBALS\GARCINIA CAMBOGIA FRUIT
     Indication: HOT FLUSH

REACTIONS (15)
  - Loss of personal independence in daily activities [Unknown]
  - Hot flush [Unknown]
  - Weight increased [Not Recovered/Not Resolved]
  - Product dose omission [Unknown]
  - Glucose tolerance impaired [Not Recovered/Not Resolved]
  - Blood growth hormone increased [Unknown]
  - Tremor [Unknown]
  - Malaise [Unknown]
  - Feeling abnormal [Not Recovered/Not Resolved]
  - Impaired healing [Not Recovered/Not Resolved]
  - Blood insulin increased [Unknown]
  - Cognitive disorder [Not Recovered/Not Resolved]
  - Bipolar I disorder [Unknown]
  - White blood cell disorder [Unknown]
  - Bedridden [Not Recovered/Not Resolved]

NARRATIVE: CASE EVENT DATE: 201704
